FAERS Safety Report 6763558-3 (Version None)
Quarter: 2010Q2

REPORT INFORMATION
  Report Type: 
  Country: None (occurrence: None)
  Receive Date: 20100610
  Receipt Date: 20100602
  Transmission Date: 20101027
  Serious: Yes (Other)
  Sender: FDA-Public Use
  Company Number: US-ASTRAZENECA-2006UW07156

PATIENT
  Age: 49 Year
  Sex: Female
  Weight: 63.5 kg

DRUGS (20)
  1. SEROQUEL [Suspect]
     Indication: SLEEP DISORDER
     Dosage: 25 -300 MG
     Route: 048
     Dates: start: 20030213, end: 20060201
  2. SEROQUEL [Suspect]
     Indication: PSYCHOTIC DISORDER
     Dosage: 25 -300 MG
     Route: 048
     Dates: start: 20030213, end: 20060201
  3. SEROQUEL [Suspect]
     Dosage: 25 MG -300 MG
     Route: 048
     Dates: start: 20030214
  4. SEROQUEL [Suspect]
     Dosage: 25 MG -300 MG
     Route: 048
     Dates: start: 20030214
  5. ZOLOFT [Concomitant]
     Route: 048
     Dates: start: 20030214
  6. ZOLOFT [Concomitant]
     Dates: start: 20030401
  7. SINEQUAN [Concomitant]
     Route: 048
     Dates: start: 20040101
  8. VIOXX [Concomitant]
     Route: 048
     Dates: start: 20030417
  9. ROBAXIN [Concomitant]
     Route: 048
  10. ROBAXIN [Concomitant]
     Route: 048
     Dates: start: 20030721
  11. FLEXERIL [Concomitant]
     Route: 048
     Dates: start: 20040414
  12. NAPROXEN [Concomitant]
     Route: 048
     Dates: start: 20040416
  13. GLUCOTROL [Concomitant]
     Route: 048
     Dates: start: 20040414
  14. NEURONTIN [Concomitant]
     Route: 048
     Dates: start: 20040722
  15. DARVOCET [Concomitant]
     Route: 048
     Dates: start: 20040720
  16. NEXIUM [Concomitant]
     Route: 048
     Dates: start: 20070610
  17. ENALAPRIL [Concomitant]
     Route: 048
     Dates: start: 20070608
  18. ZETIA [Concomitant]
     Route: 048
     Dates: start: 20061027
  19. LORATADINE [Concomitant]
     Route: 048
     Dates: start: 20070608
  20. SIMVASTATIN [Concomitant]
     Route: 048
     Dates: start: 20070608

REACTIONS (15)
  - BLINDNESS TRANSIENT [None]
  - BLOOD CHOLESTEROL INCREASED [None]
  - DIABETES MELLITUS INADEQUATE CONTROL [None]
  - DIABETIC NEUROPATHY [None]
  - DIZZINESS [None]
  - HYPERGLYCAEMIA [None]
  - HYPERLIPIDAEMIA [None]
  - INTERVERTEBRAL DISC PROTRUSION [None]
  - LOCALISED INFECTION [None]
  - NECK PAIN [None]
  - ONYCHOMYCOSIS [None]
  - SPINAL OSTEOARTHRITIS [None]
  - TYPE 2 DIABETES MELLITUS [None]
  - VISION BLURRED [None]
  - WEIGHT INCREASED [None]
